FAERS Safety Report 25208527 (Version 1)
Quarter: 2025Q2

REPORT INFORMATION
  Report Type: Spontaneous
  Country: US (occurrence: US)
  Receive Date: 20250417
  Receipt Date: 20250417
  Transmission Date: 20250716
  Serious: Yes (Hospitalization)
  Sender: BRISTOL MYERS SQUIBB
  Company Number: US-BRISTOL-MYERS SQUIBB COMPANY-2025-053784

PATIENT
  Age: 84 Year
  Sex: Female
  Weight: 45.36 kg

DRUGS (1)
  1. AUGTYRO [Suspect]
     Active Substance: REPOTRECTINIB
     Indication: Lung cancer metastatic
     Dates: start: 20250410

REACTIONS (6)
  - Pain in extremity [Unknown]
  - Abdominal pain upper [Unknown]
  - Asthenia [Unknown]
  - Agitation [Unknown]
  - Treatment noncompliance [Unknown]
  - Disorientation [Unknown]

NARRATIVE: CASE EVENT DATE: 20250401
